FAERS Safety Report 8816225 (Version 1)
Quarter: 2012Q4

REPORT INFORMATION
  Report Type: 
  Country: US (occurrence: US)
  Receive Date: 20120930
  Receipt Date: 20120930
  Transmission Date: 20130627
  Serious: Yes (Other)
  Sender: FDA-Public Use
  Company Number: US-ELI_LILLY_AND_COMPANY-US201209005256

PATIENT
  Age: 31 Year
  Sex: Female

DRUGS (4)
  1. CYMBALTA [Suspect]
     Indication: DEPRESSION
     Dosage: UNK
     Dates: start: 2009
  2. CYMBALTA [Suspect]
     Dosage: 60 mg, qd
     Dates: start: 201109
  3. ATIVAN [Concomitant]
  4. OTHER HYPNOTICS AND SEDATIVES [Concomitant]

REACTIONS (13)
  - Loss of consciousness [Unknown]
  - Convulsion [Unknown]
  - Crohn^s disease [Unknown]
  - Pain [Unknown]
  - Constipation [Unknown]
  - Drug withdrawal syndrome [Unknown]
  - Anxiety [Unknown]
  - Panic attack [Unknown]
  - Hypoaesthesia oral [Unknown]
  - Hypoaesthesia [Unknown]
  - Hand deformity [Unknown]
  - Movement disorder [Unknown]
  - Vomiting [Unknown]
